FAERS Safety Report 25936663 (Version 2)
Quarter: 2025Q4

REPORT INFORMATION
  Report Type: Report from Study
  Country: CA (occurrence: CA)
  Receive Date: 20251017
  Receipt Date: 20251021
  Transmission Date: 20260118
  Serious: Yes (Hospitalization, Other)
  Sender: HLS THERAPEUTICS
  Company Number: CA-HLS-202502651

PATIENT
  Age: 67 Year
  Sex: Male

DRUGS (1)
  1. CLOZARIL [Suspect]
     Active Substance: CLOZAPINE
     Indication: Product used for unknown indication
     Route: 048
     Dates: start: 20080508, end: 20251005

REACTIONS (6)
  - Neutropenia [Unknown]
  - Appendicitis [Recovering/Resolving]
  - Dizziness [Unknown]
  - Pyrexia [Unknown]
  - Sepsis [Unknown]
  - Vomiting [Unknown]

NARRATIVE: CASE EVENT DATE: 20251004
